FAERS Safety Report 20565231 (Version 2)
Quarter: 2022Q2

REPORT INFORMATION
  Report Type: Spontaneous
  Country: JP (occurrence: JP)
  Receive Date: 20220308
  Receipt Date: 20220410
  Transmission Date: 20220721
  Serious: Yes (Other)
  Sender: FDA-Public Use
  Company Number: JP-NOVARTISPH-NVSJ2022JP004065

PATIENT
  Age: 87 Year
  Sex: Female

DRUGS (2)
  1. JADENU [Suspect]
     Active Substance: DEFERASIROX
     Indication: Myelodysplastic syndrome
     Dosage: 360 MG, QD, AFTER SUPPER
     Route: 048
     Dates: start: 202111
  2. JADENU [Suspect]
     Active Substance: DEFERASIROX
     Indication: Iron overload

REACTIONS (1)
  - Dementia [Unknown]
